FAERS Safety Report 15761045 (Version 5)
Quarter: 2019Q1

REPORT INFORMATION
  Report Type: Spontaneous
  Country: US (occurrence: US)
  Receive Date: 20181226
  Receipt Date: 20190321
  Transmission Date: 20190417
  Serious: No
  Sender: FDA-Public Use
  Company Number: US-PFIZER INC-2018524404

PATIENT
  Age: 42 Year
  Sex: Female
  Weight: 50 kg

DRUGS (2)
  1. EFFEXOR XR [Suspect]
     Active Substance: VENLAFAXINE HYDROCHLORIDE
     Dosage: 300 MG, DAILY (150MG, CAPSULE/ QTY. 60 /DAYS SUPPLY 30)
  2. EFFEXOR XR [Suspect]
     Active Substance: VENLAFAXINE HYDROCHLORIDE
     Indication: ENDOMETRIOSIS
     Dosage: 150 MG, 1X/DAY
     Route: 048

REACTIONS (5)
  - Prescribed overdose [Unknown]
  - Product use in unapproved indication [Unknown]
  - Withdrawal syndrome [Not Recovered/Not Resolved]
  - Pre-existing condition improved [Unknown]
  - Therapeutic response unexpected [Unknown]

NARRATIVE: CASE EVENT DATE: 20181216
